FAERS Safety Report 4752409-4 (Version None)
Quarter: 2005Q3

REPORT INFORMATION
  Report Type: 
  Country: None (occurrence: None)
  Receive Date: 20050823
  Receipt Date: 20050809
  Transmission Date: 20060218
  Serious: Yes (Hospitalization)
  Sender: FDA-Public Use
  Company Number: FR_050806930

PATIENT
  Age: 67 Year
  Sex: Male

DRUGS (3)
  1. ALIMTA [Suspect]
     Indication: PLEURAL MESOTHELIOMA
     Dosage: 500 MG/M2 OTHER
     Route: 050
     Dates: start: 20050701
  2. CISPLATIN [Concomitant]
  3. VITAMIN B-12 [Concomitant]

REACTIONS (3)
  - MUCOSAL INFLAMMATION [None]
  - PAIN [None]
  - PANCYTOPENIA [None]
